FAERS Safety Report 4879808-4 (Version None)
Quarter: 2006Q1

REPORT INFORMATION
  Report Type: 
  Country: None (occurrence: None)
  Receive Date: 20060111
  Receipt Date: 20051215
  Transmission Date: 20060701
  Serious: Yes (Other)
  Sender: FDA-Public Use
  Company Number: 2006MP000027

PATIENT
  Age: 84 Year
  Sex: Male

DRUGS (2)
  1. AGGRASTAT [Suspect]
     Indication: CORONARY ANGIOPLASTY
     Dosage: 10 UG/KG;X1;IV
     Route: 040
  2. AGGRASTAT [Suspect]
     Indication: CORONARY ANGIOPLASTY
     Dosage: 0.15 UG/KG/MIN; UNKNOWN; IV
     Route: 042

REACTIONS (4)
  - ACUTE CORONARY SYNDROME [None]
  - HAEMORRHAGE [None]
  - INTRACARDIAC THROMBUS [None]
  - THROMBOCYTOPENIA [None]
